FAERS Safety Report 25616674 (Version 2)
Quarter: 2025Q4

REPORT INFORMATION
  Report Type: Spontaneous
  Country: US (occurrence: US)
  Receive Date: 20250729
  Receipt Date: 20251224
  Transmission Date: 20260117
  Serious: Yes (Other)
  Sender: ROCHE
  Company Number: US-ROCHE-10000347037

PATIENT
  Age: 75 Year
  Sex: Female

DRUGS (2)
  1. FARICIMAB-SVOA [Suspect]
     Active Substance: FARICIMAB-SVOA
     Indication: Neovascular age-related macular degeneration
  2. EYLEA [Concomitant]
     Active Substance: AFLIBERCEPT

REACTIONS (1)
  - Iridocyclitis [Recovered/Resolved]
